FAERS Safety Report 22214797 (Version 12)
Quarter: 2023Q4

REPORT INFORMATION
  Report Type: Report from Study
  Country: US (occurrence: US)
  Receive Date: 20230415
  Receipt Date: 20231121
  Transmission Date: 20240109
  Serious: No
  Sender: FDA-Public Use
  Company Number: US-002147023-NVSC2023US086649

PATIENT
  Sex: Female
  Weight: 51.247 kg

DRUGS (3)
  1. COSENTYX [Suspect]
     Active Substance: SECUKINUMAB
     Indication: Psoriasis
     Dosage: 150 MG, QW (ONCE A WEEK FOR 5 WEEKS)
     Route: 058
     Dates: start: 20230405
  2. COSENTYX [Suspect]
     Active Substance: SECUKINUMAB
     Dosage: 150 MG, QMO (THEN ONCE EVERY 4 WEEKS)
     Route: 058
  3. COSENTYX [Suspect]
     Active Substance: SECUKINUMAB
     Dosage: 150 MG, QMO
     Route: 058
     Dates: start: 20230403

REACTIONS (5)
  - Abdominal pain upper [Recovered/Resolved]
  - Pain [Recovered/Resolved]
  - Skin mass [Not Recovered/Not Resolved]
  - Skin lesion [Unknown]
  - Skin discolouration [Unknown]
